FAERS Safety Report 20580316 (Version 1)
Quarter: 2022Q1

REPORT INFORMATION
  Report Type: Spontaneous
  Country: BR (occurrence: BR)
  Receive Date: 20220311
  Receipt Date: 20220311
  Transmission Date: 20220423
  Serious: Yes (Hospitalization)
  Sender: FDA-Public Use
  Company Number: BR-ALVOGEN-2022-ALVOGEN-118434

PATIENT
  Age: 39 Year
  Sex: Female

DRUGS (4)
  1. DEXAMETHASONE [Suspect]
     Active Substance: DEXAMETHASONE
     Indication: COVID-19
     Dosage: FOR 5 DAYS
  2. IVERMECTIN [Concomitant]
     Active Substance: IVERMECTIN
     Indication: COVID-19
  3. RIVAROXABAN [Concomitant]
     Active Substance: RIVAROXABAN
     Indication: COVID-19
  4. AZITHROMYCIN [Concomitant]
     Active Substance: AZITHROMYCIN
     Indication: COVID-19

REACTIONS (1)
  - Rhinocerebral mucormycosis [Unknown]
